FAERS Safety Report 8845957 (Version 3)
Quarter: 2012Q4

REPORT INFORMATION
  Report Type: Report from Study
  Country: CA (occurrence: CA)
  Receive Date: 20121017
  Receipt Date: 20121205
  Transmission Date: 20130627
  Serious: Yes (Other)
  Sender: FDA-Public Use
  Company Number: CA-ROCHE-1145536

PATIENT
  Sex: Male
  Weight: 66.28 kg

DRUGS (9)
  1. TOCILIZUMAB [Suspect]
     Indication: RHEUMATOID ARTHRITIS
     Route: 042
     Dates: start: 20120524, end: 20120912
  2. TOCILIZUMAB [Suspect]
     Route: 042
     Dates: start: 20120620
  3. LEVOTHYROXIN [Concomitant]
  4. PREDNISONE [Concomitant]
  5. OMEGA 3 [Concomitant]
  6. NAPROXEN [Concomitant]
  7. FOLIC ACID [Concomitant]
  8. IRON SUPPLEMENT [Concomitant]
  9. VALPROIC ACID [Concomitant]

REACTIONS (1)
  - Nodule [Recovered/Resolved]
